FAERS Safety Report 23338919 (Version 1)
Quarter: 2023Q4

REPORT INFORMATION
  Report Type: Spontaneous
  Country: US (occurrence: US)
  Receive Date: 20231226
  Receipt Date: 20231226
  Transmission Date: 20240109
  Serious: No
  Sender: FDA-Public Use
  Company Number: US-009507513-2312USA005523

PATIENT
  Age: 60 Year
  Sex: Male

DRUGS (4)
  1. NOXAFIL [Suspect]
     Active Substance: POSACONAZOLE
     Indication: Antifungal prophylaxis
     Dosage: 300 MILLIGRAM, QD (6 DAYS)
     Route: 042
  2. NOXAFIL [Suspect]
     Active Substance: POSACONAZOLE
     Dosage: 325 NANOGRAM PER MILLIGRAM (6 DAYS)
  3. NOXAFIL [Suspect]
     Active Substance: POSACONAZOLE
     Dosage: 300 MILLIGRAM, QD
  4. NOXAFIL [Suspect]
     Active Substance: POSACONAZOLE
     Dosage: 225 NANOGRAM PER MILLIGRAM (6 DAYS)

REACTIONS (3)
  - Drug level below therapeutic [Unknown]
  - Wrong technique in product usage process [Unknown]
  - Incorrect route of product administration [Unknown]
